FAERS Safety Report 15430942 (Version 2)
Quarter: 2019Q1

REPORT INFORMATION
  Report Type: Spontaneous
  Country: US (occurrence: US)
  Receive Date: 20180926
  Receipt Date: 20190102
  Transmission Date: 20190417
  Serious: Yes (Hospitalization)
  Sender: FDA-Public Use
  Company Number: US-BAYER-2018-175216

PATIENT
  Age: 26 Year
  Sex: Female

DRUGS (4)
  1. ESCITALOPRAM [Concomitant]
     Active Substance: ESCITALOPRAM OXALATE
  2. PROVIGIL [Concomitant]
     Active Substance: MODAFINIL
  3. BETASERON [Suspect]
     Active Substance: INTERFERON BETA-1B
     Indication: RELAPSING-REMITTING MULTIPLE SCLEROSIS
     Dosage: UNK
     Dates: start: 201709
  4. BETASERON [Suspect]
     Active Substance: INTERFERON BETA-1B
     Indication: RELAPSING-REMITTING MULTIPLE SCLEROSIS
     Dosage: 8 MIU, QOD
     Route: 058
     Dates: start: 20170920, end: 20181219

REACTIONS (6)
  - Asthenia [None]
  - Multiple sclerosis relapse [None]
  - Visual impairment [None]
  - Brain oedema [Recovered/Resolved]
  - Product dose omission [Recovered/Resolved]
  - Hypoaesthesia [None]

NARRATIVE: CASE EVENT DATE: 20180912
